FAERS Safety Report 9182047 (Version 1)
Quarter: 2012Q4

REPORT INFORMATION
  Report Type: 
  Country: US (occurrence: US)
  Receive Date: 20121030
  Receipt Date: 20121030
  Transmission Date: 20130627
  Serious: No
  Sender: FDA-Public Use
  Company Number: US-009507513-1210USA012863

PATIENT
  Sex: Female

DRUGS (1)
  1. DULERA [Suspect]
     Dosage: UNK
     Dates: start: 201203

REACTIONS (2)
  - Ecchymosis [Not Recovered/Not Resolved]
  - Increased tendency to bruise [Not Recovered/Not Resolved]
